FAERS Safety Report 23366880 (Version 3)
Quarter: 2024Q1

REPORT INFORMATION
  Report Type: Spontaneous
  Country: US (occurrence: US)
  Receive Date: 20240104
  Receipt Date: 20240109
  Transmission Date: 20240410
  Serious: Yes (Other)
  Sender: FDA-Public Use
  Company Number: US-AMGEN-USASP2024000959

PATIENT
  Age: 83 Year
  Sex: Male

DRUGS (8)
  1. REPATHA [Suspect]
     Active Substance: EVOLOCUMAB
     Indication: Blood cholesterol abnormal
     Dosage: 420 MILLIGRAM, QMO
     Route: 065
  2. MAGNESIUM [Concomitant]
     Active Substance: MAGNESIUM
     Indication: Cardiac disorder
     Dosage: 100 MILLIGRAM
     Dates: start: 2018
  3. MAGNESIUM [Concomitant]
     Active Substance: MAGNESIUM
     Indication: Bone disorder
  4. VITAMIN C [Concomitant]
     Active Substance: ASCORBIC ACID
     Dosage: 500 MILLIGRAM, QD
  5. QUERCETIN [Concomitant]
     Active Substance: QUERCETIN
     Indication: Hypersensitivity
     Dosage: 500 MILLIGRAM, QD
     Dates: start: 2018
  6. ALPHA LIPOIC ACID [Concomitant]
     Active Substance: .ALPHA.-LIPOIC ACID
     Indication: Antioxidant therapy
     Dosage: 600 MILLIGRAM, QD
     Dates: start: 2018
  7. Glucosamine chondroitin msm [Concomitant]
     Indication: Arthropathy
     Dosage: UNK UNK, BID
     Dates: start: 2018
  8. COVID-19 vaccine [Concomitant]
     Dosage: UNK

REACTIONS (3)
  - Non-Hodgkin^s lymphoma [Unknown]
  - Pruritus [Not Recovered/Not Resolved]
  - Rash [Not Recovered/Not Resolved]
